FAERS Safety Report 7126397-X (Version None)
Quarter: 2010Q4

REPORT INFORMATION
  Report Type: 
  Country: None (occurrence: None)
  Receive Date: 20101129
  Receipt Date: 20101119
  Transmission Date: 20110411
  Serious: Yes (Hospitalization)
  Sender: FDA-Public Use
  Company Number: AU-ASTRAZENECA-2010SE55194

PATIENT
  Sex: Female

DRUGS (6)
  1. PROPOFOL [Suspect]
     Route: 042
  2. FENTANYL [Suspect]
     Route: 065
  3. PARACETAMOL [Suspect]
     Route: 065
  4. GENTAMICIN SULFATE [Suspect]
     Route: 065
  5. KEFLIN [Suspect]
     Route: 065
  6. MIDAZOLAM [Suspect]
     Route: 065

REACTIONS (1)
  - STRIDOR [None]
